FAERS Safety Report 4886083-3 (Version None)
Quarter: 2006Q1

REPORT INFORMATION
  Report Type: 
  Country: None (occurrence: None)
  Receive Date: 20060117
  Receipt Date: 20060107
  Transmission Date: 20060701
  Serious: No
  Sender: FDA-Public Use
  Company Number: B0405809A

PATIENT
  Sex: Female

DRUGS (2)
  1. COMBIVIR [Suspect]
     Indication: HIV INFECTION
  2. NEVIRAPINE [Suspect]
     Indication: HIV INFECTION

REACTIONS (3)
  - BLOOD HIV RNA INCREASED [None]
  - DRUG EXPOSURE DURING PREGNANCY [None]
  - PREGNANCY [None]
